FAERS Safety Report 9716808 (Version 1)
Quarter: 2013Q4

REPORT INFORMATION
  Report Type: Spontaneous
  Country: US (occurrence: US)
  Receive Date: 20131127
  Receipt Date: 20131127
  Transmission Date: 20140711
  Serious: No
  Sender: FDA-Public Use
  Company Number: US-009507513-1311USA007968

PATIENT
  Age: 23 Year
  Sex: Female
  Weight: 97.5 kg

DRUGS (1)
  1. NEXPLANON [Suspect]
     Indication: CONTRACEPTION
     Dosage: 3 YEAR IMPLANT
     Route: 059
     Dates: start: 20130213

REACTIONS (7)
  - Gallbladder operation [Unknown]
  - Agitation [Unknown]
  - Menorrhagia [Unknown]
  - Depressed mood [Unknown]
  - Depression [Unknown]
  - Amenorrhoea [Recovered/Resolved]
  - Fatigue [Unknown]
